FAERS Safety Report 22394045 (Version 2)
Quarter: 2023Q2

REPORT INFORMATION
  Report Type: Spontaneous
  Country: FR (occurrence: FR)
  Receive Date: 20230601
  Receipt Date: 20230609
  Transmission Date: 20230721
  Serious: Yes (Life-Threatening, Hospitalization, Other)
  Sender: FDA-Public Use
  Company Number: None

PATIENT
  Age: 86 Year
  Sex: Female
  Weight: 67 kg

DRUGS (5)
  1. AMOXICILLIN [Suspect]
     Active Substance: AMOXICILLIN
     Indication: Toothache
     Dosage: 1 DOSAGE FORM, QD, UNKNOWN DOSAGE
     Route: 048
     Dates: start: 20230307, end: 20230309
  2. LINEZOLID [Suspect]
     Active Substance: LINEZOLID
     Indication: Antibiotic prophylaxis
     Dosage: 1200 MILLIGRAM, QD, 600 MG TWICE DAILY
     Route: 048
     Dates: start: 20230313, end: 20230320
  3. AZACTAM [Suspect]
     Active Substance: AZTREONAM
     Indication: Escherichia pyelonephritis
     Dosage: 8 GRAM, 8 GRAMS CONTINUOUS IV
     Route: 042
     Dates: start: 20230314, end: 20230324
  4. LEVOTHYROXINE [Concomitant]
     Active Substance: LEVOTHYROXINE
     Indication: Post procedural hypothyroidism
     Dosage: 1 DOSAGE FORM, QD, 1-0-0, LONG-TERM
     Route: 048
  5. LEVOTHYROXINE [Concomitant]
     Active Substance: LEVOTHYROXINE
     Dosage: UNK
     Route: 065

REACTIONS (4)
  - Acute generalised exanthematous pustulosis [Recovering/Resolving]
  - Leukopenia [Recovered/Resolved]
  - Thrombocytopenia [Recovered/Resolved]
  - Rash [Not Recovered/Not Resolved]

NARRATIVE: CASE EVENT DATE: 20230309
